FAERS Safety Report 6524746-4 (Version None)
Quarter: 2010Q1

REPORT INFORMATION
  Report Type: 
  Country: None (occurrence: None)
  Receive Date: 20100104
  Receipt Date: 20091223
  Transmission Date: 20100710
  Serious: Yes (Other)
  Sender: FDA-Public Use
  Company Number: US-SANOFI-AVENTIS-2009SA004245

PATIENT
  Age: 69 Year
  Sex: Female

DRUGS (10)
  1. MULTAQ [Suspect]
     Route: 048
     Dates: start: 20091118
  2. GLUCOSAMINE [Concomitant]
     Route: 065
  3. WARFARIN [Concomitant]
  4. WARFARIN [Concomitant]
     Indication: CEREBROVASCULAR ACCIDENT PROPHYLAXIS
  5. KLOR-CON [Concomitant]
     Route: 065
  6. LASIX [Concomitant]
     Indication: DIURETIC THERAPY
     Route: 065
  7. LISINOPRIL [Concomitant]
     Indication: BLOOD PRESSURE
     Route: 065
  8. LOVASTATIN [Concomitant]
     Indication: LIPIDS
     Route: 065
  9. PANTOPRAZOLE [Concomitant]
     Route: 065
  10. SYNTHROID [Concomitant]
     Route: 065

REACTIONS (6)
  - CARDIAC FAILURE CONGESTIVE [None]
  - COUGH [None]
  - DYSPNOEA [None]
  - LUNG DISORDER [None]
  - RESPIRATORY FAILURE [None]
  - TACHYPNOEA [None]
